FAERS Safety Report 18046705 (Version 2)
Quarter: 2021Q4

REPORT INFORMATION
  Report Type: Spontaneous
  Country: US (occurrence: US)
  Receive Date: 20200720
  Receipt Date: 20211202
  Transmission Date: 20220303
  Serious: Yes (Death, Other)
  Sender: FDA-Public Use
  Company Number: US-TAKEDA-2020TUS031400

PATIENT

DRUGS (1)
  1. ULORIC [Suspect]
     Active Substance: FEBUXOSTAT
     Indication: Gout
     Dosage: UNK
     Route: 048

REACTIONS (5)
  - Cardiogenic shock [Fatal]
  - Cardiac failure congestive [Fatal]
  - Coronary artery disease [Fatal]
  - Chest pain [Unknown]
  - Palpitations [Unknown]
